FAERS Safety Report 26062772 (Version 2)
Quarter: 2025Q4

REPORT INFORMATION
  Report Type: Spontaneous
  Country: US (occurrence: US)
  Receive Date: 20251119
  Receipt Date: 20251128
  Transmission Date: 20260117
  Serious: Yes (Hospitalization)
  Sender: TEVA
  Company Number: US-TEVA-VS-3392391

PATIENT
  Age: 73 Year
  Sex: Male

DRUGS (1)
  1. AMANTADINE [Suspect]
     Active Substance: AMANTADINE
     Indication: Depressed level of consciousness
     Route: 065

REACTIONS (5)
  - Toxicity to various agents [Recovering/Resolving]
  - Agitation [Recovering/Resolving]
  - Tremor [Recovering/Resolving]
  - Myoclonus [Recovering/Resolving]
  - Mental status changes [Recovering/Resolving]
